FAERS Safety Report 8387146-0 (Version None)
Quarter: 2012Q2

REPORT INFORMATION
  Report Type: 
  Country: None (occurrence: None)
  Receive Date: 20120525
  Receipt Date: 20120514
  Transmission Date: 20120825
  Serious: Yes (Hospitalization)
  Sender: FDA-Public Use
  Company Number: US-ROCHE-1012298

PATIENT
  Age: 61 Year
  Sex: Female

DRUGS (3)
  1. PACLITAXEL [Suspect]
     Indication: BREAST CANCER METASTATIC
     Dosage: OVER 1HR
     Route: 042
     Dates: start: 20051005
  2. TARCEVA [Suspect]
     Indication: BREAST CANCER METASTATIC
     Dosage: STARTED ON CYCLE 1 DAY 3
     Route: 048
  3. HERCEPTIN [Suspect]
     Indication: BREAST CANCER METASTATIC
     Dosage: 30 MIN AFTER PACLITAXEL INFUSION IV OVER 30 MIN
     Route: 042
     Dates: start: 20051005

REACTIONS (5)
  - DYSPNOEA [None]
  - FATIGUE [None]
  - STOMATITIS [None]
  - WHITE BLOOD CELL COUNT DECREASED [None]
  - BLOOD BILIRUBIN INCREASED [None]
